FAERS Safety Report 7429981-9 (Version None)
Quarter: 2011Q2

REPORT INFORMATION
  Report Type: 
  Country: None (occurrence: None)
  Receive Date: 20110421
  Receipt Date: 20110418
  Transmission Date: 20111010
  Serious: Yes (Other)
  Sender: FDA-Public Use
  Company Number: US-PFIZER INC-2011014265

PATIENT
  Sex: Female

DRUGS (1)
  1. CHANTIX [Suspect]
     Indication: SMOKING CESSATION THERAPY
     Dosage: STARTER PACK AND CONTINUING PACK
     Dates: start: 20071120, end: 20080101

REACTIONS (6)
  - PANIC DISORDER [None]
  - DEPRESSION [None]
  - SCHIZOAFFECTIVE DISORDER BIPOLAR TYPE [None]
  - SUICIDAL IDEATION [None]
  - ANXIETY [None]
  - NIGHTMARE [None]
